FAERS Safety Report 8147444-2 (Version None)
Quarter: 2012Q1

REPORT INFORMATION
  Report Type: 
  Country: None (occurrence: None)
  Receive Date: 20120218
  Receipt Date: 20110511
  Transmission Date: 20120608
  Serious: Yes (Hospitalization)
  Sender: FDA-Public Use
  Company Number: US-ALLERGAN-1101956US

PATIENT
  Age: 62 Year
  Sex: Female
  Weight: 126.53 kg

DRUGS (2)
  1. CORTICOSTEROIDS [Concomitant]
     Indication: PRODUCT USED FOR UNKNOWN INDICATION
  2. BOTULINUM TOXIN TYPE A [Suspect]
     Indication: HEADACHE
     Dosage: 30 UNITS, SINGLE
     Route: 030
     Dates: start: 20110119, end: 20110119

REACTIONS (4)
  - LOCAL SWELLING [None]
  - CUSHINGOID [None]
  - SKIN OEDEMA [None]
  - FACE OEDEMA [None]
